FAERS Safety Report 14027341 (Version 1)
Quarter: 2017Q3

REPORT INFORMATION
  Report Type: Spontaneous
  Country: US (occurrence: US)
  Receive Date: 20170929
  Receipt Date: 20170929
  Transmission Date: 20171128
  Serious: Yes (Other)
  Sender: FDA-Public Use
  Company Number: US-HETERO CORPORATE-HET2017US00218

PATIENT
  Age: 76 Year
  Sex: Female
  Weight: 128.35 kg

DRUGS (2)
  1. LINEZOLID. [Suspect]
     Active Substance: LINEZOLID
     Indication: INFECTION
     Dosage: UNK UNK, QD
     Route: 065
     Dates: start: 20170912, end: 20170924
  2. HYDROCHLOROTHIAZIDE. [Concomitant]
     Active Substance: HYDROCHLOROTHIAZIDE
     Indication: PRODUCT USED FOR UNKNOWN INDICATION
     Dosage: UNK
     Route: 065

REACTIONS (14)
  - Vomiting [Recovering/Resolving]
  - Pruritus generalised [Recovering/Resolving]
  - Peripheral swelling [Recovering/Resolving]
  - Malaise [Recovering/Resolving]
  - Abdominal pain upper [Recovering/Resolving]
  - Diarrhoea [Recovering/Resolving]
  - Blister [Recovering/Resolving]
  - Glossodynia [Recovering/Resolving]
  - Oral pain [Recovering/Resolving]
  - Skin exfoliation [Recovering/Resolving]
  - Appetite disorder [Recovering/Resolving]
  - Monoparesis [Recovering/Resolving]
  - Fatigue [Recovering/Resolving]
  - Skin disorder [Recovering/Resolving]
